FAERS Safety Report 5594736-7 (Version None)
Quarter: 2007Q4

REPORT INFORMATION
  Report Type: 
  Country: None (occurrence: None)
  Receive Date: 20071218
  Receipt Date: 20070320
  Transmission Date: 20080405
  Serious: Yes (Other)
  Sender: FDA-Public Use
  Company Number: 2007022894

PATIENT
  Age: 46 Year
  Sex: Female
  Weight: 77.1 kg

DRUGS (1)
  1. BEXTRA [Suspect]
     Indication: ARTHRITIS
     Dosage: 2 IN 1 D
     Dates: start: 20020218

REACTIONS (3)
  - ANXIETY [None]
  - EMBOLISM [None]
  - MYOCARDIAL INFARCTION [None]
